FAERS Safety Report 7983030-2 (Version None)
Quarter: 2011Q4

REPORT INFORMATION
  Report Type: 
  Country: None (occurrence: None)
  Receive Date: 20111215
  Receipt Date: 20111205
  Transmission Date: 20120403
  Serious: Yes (Hospitalization)
  Sender: FDA-Public Use
  Company Number: US-JNJFOC-20111203157

PATIENT
  Sex: Female
  Weight: 34.2 kg

DRUGS (16)
  1. PREDNISONE [Concomitant]
  2. RIFAXIMIN [Concomitant]
  3. INFLIXIMAB, RECOMBINANT [Suspect]
     Route: 042
     Dates: start: 20080205
  4. ACETAMINOPHEN [Concomitant]
  5. CHOLECALCIFEROL [Concomitant]
     Dosage: DOSE: 1000 UNITS
  6. INFLIXIMAB, RECOMBINANT [Suspect]
     Indication: INFLAMMATORY BOWEL DISEASE
     Route: 042
     Dates: start: 20090114
  7. LOPERAMIDE HCL [Concomitant]
  8. HUMIRA [Concomitant]
  9. PREVACID [Concomitant]
  10. METRONIDAZOLE [Concomitant]
  11. FOLIC ACID [Concomitant]
  12. CIPROFLOXACIN [Concomitant]
  13. M.V.I. [Concomitant]
  14. PEPTAMEN [Concomitant]
     Dosage: 4 CANS PER NIGHT
  15. METHOTREXATE [Concomitant]
  16. BENEFIBER [Concomitant]
     Dosage: DOSE:1 TSP. BID

REACTIONS (1)
  - PYREXIA [None]
